FAERS Safety Report 4930861-9 (Version None)
Quarter: 2006Q1

REPORT INFORMATION
  Report Type: 
  Country: None (occurrence: None)
  Receive Date: 20060227
  Receipt Date: 20060214
  Transmission Date: 20060701
  Serious: Yes (Death, Other)
  Sender: FDA-Public Use
  Company Number: 2006-00290

PATIENT
  Age: 31 Year
  Sex: Female

DRUGS (3)
  1. VELCADE [Suspect]
     Indication: MULTIPLE MYELOMA
     Dosage: 1.30 MG/M2, UNK, IV BOLUS; 1.00 MG/M2, UNK, IV BOLUS; 0.70 MG/M2, UNK, IV BOLUS
     Route: 040
     Dates: start: 20050211, end: 20050221
  2. VELCADE [Suspect]
     Indication: MULTIPLE MYELOMA
     Dosage: 1.30 MG/M2, UNK, IV BOLUS; 1.00 MG/M2, UNK, IV BOLUS; 0.70 MG/M2, UNK, IV BOLUS
     Route: 040
     Dates: start: 20050304, end: 20050304
  3. VELCADE [Suspect]
     Indication: MULTIPLE MYELOMA
     Dosage: 1.30 MG/M2, UNK, IV BOLUS; 1.00 MG/M2, UNK, IV BOLUS; 0.70 MG/M2, UNK, IV BOLUS
     Route: 040
     Dates: start: 20050311, end: 20050314

REACTIONS (4)
  - GENERAL PHYSICAL HEALTH DETERIORATION [None]
  - INTERSTITIAL LUNG DISEASE [None]
  - LUNG DISORDER [None]
  - RESPIRATORY FAILURE [None]
